FAERS Safety Report 10049174 (Version 1)
Quarter: 2014Q2

REPORT INFORMATION
  Report Type: Report from Study
  Country: FR (occurrence: FR)
  Receive Date: 20140401
  Receipt Date: 20140401
  Transmission Date: 20141212
  Serious: Yes (Disabling)
  Sender: FDA-Public Use
  Company Number: FR-ROCHE-1371523

PATIENT
  Sex: Female

DRUGS (13)
  1. RITUXIMAB [Suspect]
     Dosage: DAY 15
     Route: 041
     Dates: start: 20120712
  2. LEFLUNOMIDE [Concomitant]
     Route: 065
  3. LEFLUNOMIDE [Concomitant]
     Dosage: INITIALLY UNSPECIFIED DOSE
     Route: 065
  4. CORTANCYL [Concomitant]
     Route: 065
  5. CORTANCYL [Concomitant]
     Route: 065
  6. CORTANCYL [Concomitant]
     Route: 065
  7. CORTANCYL [Concomitant]
     Route: 065
  8. PRAVASTATINE [Concomitant]
     Route: 065
  9. RITUXIMAB [Suspect]
     Indication: RHEUMATOID ARTHRITIS
     Dosage: DAY1
     Route: 041
     Dates: start: 20090309
  10. RITUXIMAB [Suspect]
     Dosage: DAY 15
     Route: 041
     Dates: start: 20090323
  11. RITUXIMAB [Suspect]
     Dosage: DAY 1
     Route: 041
     Dates: start: 20110527
  12. RITUXIMAB [Suspect]
     Dosage: DAY 15
     Route: 041
     Dates: start: 20110610
  13. RITUXIMAB [Suspect]
     Dosage: DAY 1
     Route: 041
     Dates: start: 20120628

REACTIONS (2)
  - Sciatica [Not Recovered/Not Resolved]
  - Neuropathy peripheral [Recovered/Resolved]
